FAERS Safety Report 4512162-6 (Version None)
Quarter: 2004Q4

REPORT INFORMATION
  Report Type: 
  Country: None (occurrence: None)
  Receive Date: 20041129
  Receipt Date: 20041115
  Transmission Date: 20050328
  Serious: Yes (Hospitalization)
  Sender: FDA-Public Use
  Company Number: JP-ROCHE-386639

PATIENT
  Age: 69 Year
  Sex: Female

DRUGS (3)
  1. CAPECITABINE [Suspect]
     Indication: BREAST CANCER
     Dosage: THREE WEEK ADMINISTRATION AND ONE WEEK REST.
     Route: 048
     Dates: start: 20031218, end: 20040108
  2. CAPECITABINE [Suspect]
     Dosage: THREE WEEK ADMINISTRATIN AND ONE WEEK REST.
     Route: 048
     Dates: start: 20040116, end: 20040401
  3. ARIMIDEX [Suspect]
     Route: 048
     Dates: start: 20031218, end: 20040401

REACTIONS (1)
  - TOXIC SKIN ERUPTION [None]
